FAERS Safety Report 19764772 (Version 1)
Quarter: 2021Q3

REPORT INFORMATION
  Report Type: Spontaneous
  Country: US (occurrence: US)
  Receive Date: 20210830
  Receipt Date: 20210830
  Transmission Date: 20211014
  Serious: No
  Sender: FDA-Public Use
  Company Number: US-ASTRAZENECA-2021A686292

PATIENT
  Sex: Female
  Weight: 61.2 kg

DRUGS (1)
  1. BREZTRI AEROSPHERE [Suspect]
     Active Substance: BUDESONIDE\FORMOTEROL\GLYCOPYRRONIUM
     Indication: CHRONIC OBSTRUCTIVE PULMONARY DISEASE
     Dosage: 2 PUFFS, TWO TIMES A DAY
     Route: 055
     Dates: start: 2021

REACTIONS (5)
  - Incorrect dose administered by device [Not Recovered/Not Resolved]
  - Device use issue [Unknown]
  - Therapeutic response changed [Not Recovered/Not Resolved]
  - Device delivery system issue [Unknown]
  - Product cleaning inadequate [Not Recovered/Not Resolved]

NARRATIVE: CASE EVENT DATE: 2021
